FAERS Safety Report 23381760 (Version 2)
Quarter: 2024Q1

REPORT INFORMATION
  Report Type: Report from Study
  Country: US (occurrence: US)
  Receive Date: 20240109
  Receipt Date: 20240212
  Transmission Date: 20240410
  Serious: Yes (Other)
  Sender: FDA-Public Use
  Company Number: US-AstraZeneca-CH-00538406A

PATIENT
  Sex: Female

DRUGS (1)
  1. STRENSIQ [Suspect]
     Active Substance: ASFOTASE ALFA
     Indication: Hypophosphatasia
     Dosage: UNK
     Route: 065

REACTIONS (15)
  - Marfan^s syndrome [Unknown]
  - Depression [Unknown]
  - Malaise [Unknown]
  - Arthropathy [Unknown]
  - Pain [Unknown]
  - Anaemia [Unknown]
  - Foot fracture [Not Recovered/Not Resolved]
  - Abdominal distension [Not Recovered/Not Resolved]
  - Headache [Not Recovered/Not Resolved]
  - Nausea [Not Recovered/Not Resolved]
  - Injection site erythema [Unknown]
  - Impaired healing [Not Recovered/Not Resolved]
  - Anxiety [Unknown]
  - Blood iron decreased [Unknown]
  - Injection site hypersensitivity [Unknown]

NARRATIVE: CASE EVENT DATE: 20220101
